FAERS Safety Report 11971502 (Version 1)
Quarter: 2016Q1

REPORT INFORMATION
  Report Type: Spontaneous
  Country: DE (occurrence: DE)
  Receive Date: 20160128
  Receipt Date: 20160128
  Transmission Date: 20160526
  Serious: Yes (Life-Threatening, Hospitalization, Other)
  Sender: FDA-Public Use
  Company Number: DE-PFIZER INC-2016037440

PATIENT
  Sex: Female
  Weight: 64 kg

DRUGS (3)
  1. CYTOTEC [Suspect]
     Active Substance: MISOPROSTOL
     Indication: LABOUR INDUCTION
     Dosage: UNK
     Route: 048
     Dates: start: 20150726, end: 20150726
  2. CASTOR OIL. [Suspect]
     Active Substance: CASTOR OIL
     Indication: LABOUR INDUCTION
     Dosage: UNK
     Route: 048
     Dates: start: 20150725, end: 20150725
  3. FOLIC ACID. [Concomitant]
     Active Substance: FOLIC ACID
     Indication: PROPHYLAXIS OF NEURAL TUBE DEFECT
     Dosage: UNK
     Route: 048

REACTIONS (4)
  - Product use issue [Unknown]
  - Postpartum haemorrhage [Recovered/Resolved]
  - Uterine atony [Recovered/Resolved with Sequelae]
  - Disseminated intravascular coagulation [Recovered/Resolved]

NARRATIVE: CASE EVENT DATE: 2015
